FAERS Safety Report 4501302-0 (Version None)
Quarter: 2004Q4

REPORT INFORMATION
  Report Type: 
  Country: None (occurrence: None)
  Receive Date: 20041110
  Receipt Date: 20041026
  Transmission Date: 20050328
  Serious: Yes (Hospitalization)
  Sender: FDA-Public Use
  Company Number: SYNAGIS-04240

PATIENT
  Age: 14 Month
  Sex: Female

DRUGS (6)
  1. SYNAGIS [Suspect]
     Dosage: 160 MG, 1 IN 30 D, INTRAMUSCULAR
     Route: 030
     Dates: start: 20021112, end: 20030318
  2. INFLUENZA VACCINE [Concomitant]
  3. ATTENUATED MEASLES VACCINE [Concomitant]
  4. TIPEPIDINE HIBENZATE [Concomitant]
  5. L-CARBOCISTEINE (CARBOCISTEINE LYSINE) [Concomitant]
  6. CYPROHEPTADINE HYDROCHLORIDE [Concomitant]

REACTIONS (2)
  - FEBRILE CONVULSION [None]
  - UPPER RESPIRATORY TRACT INFLAMMATION [None]
